FAERS Safety Report 10559655 (Version 2)
Quarter: 2014Q4

REPORT INFORMATION
  Report Type: Spontaneous
  Country: US (occurrence: US)
  Receive Date: 20141103
  Receipt Date: 20141109
  Transmission Date: 20150529
  Serious: Yes (Death, Hospitalization)
  Sender: FDA-Public Use
  Company Number: US-MERCK-1410USA015862

PATIENT
  Age: 72 Year
  Sex: Male

DRUGS (2)
  1. OXYGEN. [Concomitant]
     Active Substance: OXYGEN
  2. NOXAFIL [Suspect]
     Active Substance: POSACONAZOLE
     Indication: PNEUMONIA FUNGAL
     Dosage: 3 DF, QD
     Route: 048
     Dates: start: 20140130

REACTIONS (3)
  - Pulmonary oedema [Fatal]
  - Fall [Unknown]
  - Pericardial effusion [Fatal]

NARRATIVE: CASE EVENT DATE: 201410
